FAERS Safety Report 5720400-7 (Version None)
Quarter: 2008Q2

REPORT INFORMATION
  Report Type: 
  Country: None (occurrence: None)
  Receive Date: 20080423
  Receipt Date: 20070503
  Transmission Date: 20081010
  Serious: No
  Sender: FDA-Public Use
  Company Number: 240582

PATIENT
  Age: 76 Year
  Sex: Female
  Weight: 78.5 kg

DRUGS (2)
  1. AVASTIN [Suspect]
     Indication: COLORECTAL CANCER METASTATIC
     Dosage: 588 MG, Q3W, INTRAVENOUS
     Route: 042
     Dates: start: 20061012
  2. XELODA [Concomitant]

REACTIONS (1)
  - ABDOMINAL WALL ABSCESS [None]
